FAERS Safety Report 21742393 (Version 1)
Quarter: 2022Q4

REPORT INFORMATION
  Report Type: Spontaneous
  Country: US (occurrence: US)
  Receive Date: 20221216
  Receipt Date: 20221216
  Transmission Date: 20230113
  Serious: No
  Sender: FDA-Public Use
  Company Number: US-TAKEDA-2022TUS093761

PATIENT
  Sex: Male
  Weight: 91.4 kg

DRUGS (3)
  1. VELCADE [Suspect]
     Active Substance: BORTEZOMIB
     Indication: Plasma cell myeloma
     Dosage: 1.5 MILLIGRAM/SQ. METER, 1/WEEK
     Route: 058
     Dates: start: 20150102, end: 20150416
  2. DECADRON [Suspect]
     Active Substance: DEXAMETHASONE
     Indication: Plasma cell myeloma
     Dosage: 40 MILLIGRAM, 1/WEEK
     Route: 048
     Dates: start: 20150102, end: 20150416
  3. CYTOXAN [Suspect]
     Active Substance: CYCLOPHOSPHAMIDE
     Indication: Plasma cell myeloma
     Dosage: 600 MILLIGRAM, 1/WEEK
     Route: 048
     Dates: start: 20150102, end: 20150416

REACTIONS (1)
  - Toxicity to various agents [Unknown]
